FAERS Safety Report 5838667-3 (Version None)
Quarter: 2008Q3

REPORT INFORMATION
  Report Type: 
  Country: None (occurrence: None)
  Receive Date: 20080808
  Receipt Date: 20080729
  Transmission Date: 20090109
  Serious: Yes (Hospitalization, Other)
  Sender: FDA-Public Use
  Company Number: US-MERCK-0705USA05344

PATIENT
  Age: 66 Year
  Sex: Female
  Weight: 72 kg

DRUGS (5)
  1. FOSAMAX [Suspect]
     Indication: OSTEOPOROSIS
     Route: 048
     Dates: start: 20040921, end: 20050101
  2. [THERAPY UNSPECIFIED] [Concomitant]
     Indication: BLOOD CHOLESTEROL DECREASED
     Route: 065
     Dates: start: 20020101
  3. [THERAPY UNSPECIFIED] [Concomitant]
     Indication: DIABETES MELLITUS
     Route: 065
     Dates: start: 19930101
  4. FOSAMAX [Suspect]
     Route: 048
     Dates: start: 20050207, end: 20050101
  5. FOSAMAX [Suspect]
     Route: 048
     Dates: start: 20050602

REACTIONS (23)
  - ABSCESS [None]
  - BLOOD URINE PRESENT [None]
  - CHEST PAIN [None]
  - CONSTIPATION [None]
  - DENTAL CARIES [None]
  - DIABETES MELLITUS INADEQUATE CONTROL [None]
  - DYSTONIA [None]
  - EXTRAPYRAMIDAL DISORDER [None]
  - GASTROOESOPHAGEAL REFLUX DISEASE [None]
  - GINGIVAL BLEEDING [None]
  - GINGIVAL INFECTION [None]
  - HYPERCALCAEMIA [None]
  - HYPERPARATHYROIDISM PRIMARY [None]
  - IMPAIRED HEALING [None]
  - ORAL INFECTION [None]
  - ORAL PAIN [None]
  - OSTEONECROSIS [None]
  - PAIN [None]
  - PARATHYROID TUMOUR BENIGN [None]
  - RESORPTION BONE INCREASED [None]
  - SWELLING [None]
  - TOOTH LOSS [None]
  - VOMITING [None]
